FAERS Safety Report 14201839 (Version 1)
Quarter: 2017Q4

REPORT INFORMATION
  Report Type: Spontaneous
  Country: US (occurrence: US)
  Receive Date: 20171117
  Receipt Date: 20171117
  Transmission Date: 20180321
  Serious: No
  Sender: FDA-Public Use
  Company Number: US-G+W LABS-GW2017US000252

PATIENT

DRUGS (3)
  1. TRIAMCINOLONE ACETONIDE. [Suspect]
     Active Substance: TRIAMCINOLONE ACETONIDE
     Indication: RASH
     Dosage: UNK
     Route: 061
  2. DESONIDE. [Suspect]
     Active Substance: DESONIDE
     Indication: RASH
     Dosage: 0.05 %, UNK
     Route: 061
     Dates: start: 20170818, end: 20170820
  3. CLOBETASOL PROPIONATE. [Suspect]
     Active Substance: CLOBETASOL PROPIONATE
     Indication: RASH
     Route: 061

REACTIONS (5)
  - Pruritus [Not Recovered/Not Resolved]
  - Mental impairment [Unknown]
  - Insomnia [Unknown]
  - Rash erythematous [Recovered/Resolved]
  - Burning sensation [Not Recovered/Not Resolved]

NARRATIVE: CASE EVENT DATE: 20170813
